FAERS Safety Report 4742710-2 (Version None)
Quarter: 2005Q3

REPORT INFORMATION
  Report Type: 
  Country: None (occurrence: None)
  Receive Date: 20050811
  Receipt Date: 20050608
  Transmission Date: 20060218
  Serious: Yes (Life-Threatening)
  Sender: FDA-Public Use
  Company Number: JP-MERCK-0506USA02142

PATIENT
  Age: 85 Year
  Sex: Male
  Weight: 36 kg

DRUGS (10)
  1. PEPCID [Suspect]
     Indication: GASTROINTESTINAL HAEMORRHAGE
     Route: 041
     Dates: start: 20050529, end: 20050609
  2. PRIMAXIN [Suspect]
     Route: 041
     Dates: start: 20050603, end: 20050609
  3. FUTHAN [Concomitant]
     Route: 065
     Dates: start: 20050529, end: 20050529
  4. FOY [Concomitant]
     Route: 065
     Dates: start: 20050529, end: 20050607
  5. VITAMEDIN [Concomitant]
     Route: 042
     Dates: start: 20050529, end: 20050530
  6. KAYTWO [Concomitant]
     Indication: ENTEROCOLITIS HAEMORRHAGIC
     Route: 042
     Dates: start: 20050529, end: 20050530
  7. SULPERAZON [Concomitant]
     Indication: ENTEROCOLITIS HAEMORRHAGIC
     Route: 042
     Dates: start: 20050603, end: 20050604
  8. DOBUTAMINE HYDROCHLORIDE [Concomitant]
     Indication: SHOCK
     Route: 042
     Dates: start: 20050604, end: 20050606
  9. GAMMAGARD [Concomitant]
     Indication: ENTEROCOLITIS HAEMORRHAGIC
     Route: 042
     Dates: start: 20050603
  10. GAMMAGARD [Concomitant]
     Route: 042
     Dates: start: 20050604, end: 20050605

REACTIONS (6)
  - ATRIAL FIBRILLATION [None]
  - CONVULSION [None]
  - DEPRESSED LEVEL OF CONSCIOUSNESS [None]
  - MYOCLONUS [None]
  - PNEUMONIA [None]
  - SHOCK [None]
